FAERS Safety Report 5398520-9 (Version None)
Quarter: 2007Q3

REPORT INFORMATION
  Report Type: 
  Country: None (occurrence: None)
  Receive Date: 20070726
  Receipt Date: 20060808
  Transmission Date: 20080115
  Serious: No
  Sender: FDA-Public Use
  Company Number: US-AMGEN-KDL189468

PATIENT
  Sex: Female
  Weight: 42.7 kg

DRUGS (6)
  1. PROCRIT [Suspect]
     Indication: ANAEMIA OF MALIGNANT DISEASE
     Dates: start: 20000101
  2. LEVOTHROID [Concomitant]
     Dates: start: 20060401
  3. ATENOLOL [Concomitant]
     Dates: start: 20060601
  4. WARFARIN SODIUM [Concomitant]
     Dates: start: 19950101
  5. WARFARIN SODIUM [Concomitant]
  6. ZOMETA [Concomitant]
     Dates: start: 20010101

REACTIONS (1)
  - ALOPECIA [None]
